FAERS Safety Report 5694070-0 (Version None)
Quarter: 2008Q1

REPORT INFORMATION
  Report Type: 
  Country: None (occurrence: None)
  Receive Date: 20080320
  Receipt Date: 20080307
  Transmission Date: 20080703
  Serious: Yes (Other)
  Sender: FDA-Public Use
  Company Number: THYM-1000646

PATIENT
  Age: 38 Year
  Sex: Female
  Weight: 69.9 kg

DRUGS (7)
  1. THYMOGLOBULIN [Suspect]
     Indication: RENAL TRANSPLANT
     Dosage: 1.5 MG/KG, QD, INTRAVENOUS
     Route: 042
     Dates: start: 20080304
  2. SOLU-MEDROL [Concomitant]
  3. MYCOPHENOLATE (MYCOPHENOLATE MOFETIL) [Concomitant]
  4. CEFTRIAXONE [Concomitant]
  5. BENADRYL [Concomitant]
  6. TYLENOL (PARACETAMOL, PSEUDOEPHEDRINE HYDROCHLORIDE) [Concomitant]
  7. STEROIDS [Concomitant]

REACTIONS (6)
  - DYSPNOEA [None]
  - LUNG INFILTRATION [None]
  - OXYGEN SATURATION DECREASED [None]
  - PYREXIA [None]
  - TACHYCARDIA [None]
  - VOMITING [None]
